FAERS Safety Report 23550357 (Version 1)
Quarter: 2024Q1

REPORT INFORMATION
  Report Type: Spontaneous
  Country: FR (occurrence: FR)
  Receive Date: 20240221
  Receipt Date: 20240221
  Transmission Date: 20240410
  Serious: Yes (Death)
  Sender: FDA-Public Use
  Company Number: None

PATIENT
  Age: 65 Year
  Sex: Male

DRUGS (1)
  1. SPIRONOLACTONE [Suspect]
     Active Substance: SPIRONOLACTONE
     Indication: Cirrhosis alcoholic
     Dosage: DURATION: 37 DAYS
     Route: 048
     Dates: start: 20231015, end: 20231121

REACTIONS (1)
  - Dermatitis bullous [Fatal]

NARRATIVE: CASE EVENT DATE: 20231107
